FAERS Safety Report 5031931-X (Version None)
Quarter: 2006Q2

REPORT INFORMATION
  Report Type: 
  Country: None (occurrence: None)
  Receive Date: 20060621
  Receipt Date: 20060112
  Transmission Date: 20061013
  Serious: No
  Sender: FDA-Public Use
  Company Number: US-AMGEN-US164483

PATIENT
  Sex: Female

DRUGS (14)
  1. EPOGEN [Suspect]
     Indication: DIALYSIS
     Dates: start: 20050501, end: 20051001
  2. ARANESP [Suspect]
     Dates: start: 20051001
  3. MEDICINALPRODUCT NOT SPECIFIED BY SENDER [Concomitant]
  4. MEDICINALPRODUCT NOT SPECIFIED BY SENDER [Concomitant]
  5. MEDICINALPRODUCT NOT SPECIFIED BY SENDER [Concomitant]
  6. MEDICINALPRODUCT NOT SPECIFIED BY SENDER [Concomitant]
  7. MEDICINALPRODUCT NOT SPECIFIED BY SENDER [Concomitant]
  8. MEDICINALPRODUCT NOT SPECIFIED BY SENDER [Concomitant]
  9. MEDICINALPRODUCT NOT SPECIFIED BY SENDER [Concomitant]
  10. MEDICINALPRODUCT NOT SPECIFIED BY SENDER [Concomitant]
  11. MEDICINALPRODUCT NOT SPECIFIED BY SENDER [Concomitant]
  12. MEDICINALPRODUCT NOT SPECIFIED BY SENDER [Concomitant]
  13. MEDICINALPRODUCT NOT SPECIFIED BY SENDER [Concomitant]
  14. MEDICINALPRODUCT NOT SPECIFIED BY SENDER [Concomitant]

REACTIONS (3)
  - HAEMORRHOIDAL HAEMORRHAGE [None]
  - MENORRHAGIA [None]
  - THERAPEUTIC RESPONSE DECREASED [None]
